FAERS Safety Report 19176816 (Version 1)
Quarter: 2021Q2

REPORT INFORMATION
  Report Type: Spontaneous
  Country: US (occurrence: US)
  Receive Date: 20210424
  Receipt Date: 20210424
  Transmission Date: 20210717
  Serious: No
  Sender: FDA-Public Use
  Company Number: US-UNITED THERAPEUTICS-UNT-2021-006901

PATIENT
  Age: 56 Year
  Sex: Female

DRUGS (2)
  1. REMODULIN [Suspect]
     Active Substance: TREPROSTINIL
     Dosage: 0.020 ?G/KG, CONTINUING
     Route: 041
  2. REMODULIN [Suspect]
     Active Substance: TREPROSTINIL
     Indication: PULMONARY ARTERIAL HYPERTENSION
     Dosage: UNK, CONTINUING
     Route: 041
     Dates: start: 20200617

REACTIONS (7)
  - Device maintenance issue [Unknown]
  - Muscle twitching [Unknown]
  - Product administration interrupted [Unknown]
  - Dizziness [Unknown]
  - Device leakage [Recovered/Resolved]
  - Suture rupture [Unknown]
  - Asthenia [Unknown]

NARRATIVE: CASE EVENT DATE: 202104
